FAERS Safety Report 6445452-0 (Version None)
Quarter: 2009Q4

REPORT INFORMATION
  Report Type: 
  Country: None (occurrence: None)
  Receive Date: 20091118
  Receipt Date: 20090930
  Transmission Date: 20100525
  Serious: Yes (Death, Other)
  Sender: FDA-Public Use
  Company Number: ZA-ABBOTT-07P-143-0358520-00

PATIENT
  Age: 12 Month
  Sex: Male

DRUGS (6)
  1. RITONAVIR ORAL SOLUTION [Suspect]
     Indication: HIV INFECTION
     Route: 048
     Dates: start: 20060831, end: 20070112
  2. LAMIVUDINE [Concomitant]
     Indication: HIV INFECTION
     Route: 048
     Dates: start: 20060621, end: 20070112
  3. ZIDOVUDINE [Concomitant]
     Indication: HIV INFECTION
     Route: 048
     Dates: start: 20060621, end: 20070112
  4. CO-TRIMOXAZOLE [Concomitant]
     Indication: DRUG USE FOR UNKNOWN INDICATION
  5. RIMCURE [Concomitant]
     Indication: DRUG USE FOR UNKNOWN INDICATION
  6. PREDNISONE [Concomitant]
     Indication: DRUG USE FOR UNKNOWN INDICATION

REACTIONS (2)
  - DEATH [None]
  - HEPATIC ENZYME INCREASED [None]
